FAERS Safety Report 6485433-4 (Version None)
Quarter: 2009Q4

REPORT INFORMATION
  Report Type: 
  Country: None (occurrence: None)
  Receive Date: 20091209
  Receipt Date: 20090714
  Transmission Date: 20100525
  Serious: No
  Sender: FDA-Public Use
  Company Number: US-AMGEN-KDL353101

PATIENT
  Sex: Female

DRUGS (6)
  1. ENBREL [Suspect]
     Indication: RHEUMATOID ARTHRITIS
     Route: 058
     Dates: start: 20000201
  2. METHOTREXATE [Concomitant]
  3. ZOLPIDEM [Concomitant]
  4. TOPROL-XL [Concomitant]
  5. ZOCOR [Concomitant]
  6. PREDNISONE [Concomitant]

REACTIONS (5)
  - CHILLS [None]
  - MALAISE [None]
  - NAUSEA [None]
  - PYREXIA [None]
  - WHITE BLOOD CELL COUNT INCREASED [None]
